FAERS Safety Report 5622586-1 (Version None)
Quarter: 2008Q1

REPORT INFORMATION
  Report Type: 
  Country: None (occurrence: None)
  Receive Date: 20080208
  Receipt Date: 20080208
  Transmission Date: 20080703
  Serious: Yes (Death)
  Sender: FDA-Public Use
  Company Number: None

PATIENT
  Age: 18 Day
  Sex: Female

DRUGS (1)
  1. NITRIC OXIDE [Suspect]

REACTIONS (7)
  - BRADYCARDIA NEONATAL [None]
  - CARDIO-RESPIRATORY ARREST [None]
  - DEVICE MALFUNCTION [None]
  - HEART RATE DECREASED [None]
  - NEONATAL DISORDER [None]
  - NEONATAL HYPOTENSION [None]
  - OXYGEN SATURATION DECREASED [None]
